FAERS Safety Report 8298849-0 (Version None)
Quarter: 2012Q2

REPORT INFORMATION
  Report Type: 
  Country: None (occurrence: None)
  Receive Date: 20120419
  Receipt Date: 20120404
  Transmission Date: 20120825
  Serious: Yes (Death, Other)
  Sender: FDA-Public Use
  Company Number: US-WATSON-2012-06150

PATIENT

DRUGS (1)
  1. RAPAFLO [Suspect]
     Indication: PRODUCT USED FOR UNKNOWN INDICATION
     Dosage: 8 MG 90 CAPSULES, UNK
     Route: 048

REACTIONS (1)
  - DEATH [None]
